FAERS Safety Report 6204842-1 (Version None)
Quarter: 2009Q2

REPORT INFORMATION
  Report Type: 
  Country: None (occurrence: None)
  Receive Date: 20090527
  Receipt Date: 20090520
  Transmission Date: 20091009
  Serious: Yes (Other)
  Sender: FDA-Public Use
  Company Number: CA-JNJCH-2009014064

PATIENT
  Age: 14 Year
  Sex: Male

DRUGS (1)
  1. REACTINE SYRUP [Suspect]
     Indication: DRUG USE FOR UNKNOWN INDICATION
     Dosage: TEXT:UNSPECIFIED
     Route: 048

REACTIONS (3)
  - DEAFNESS [None]
  - DRUG INEFFECTIVE [None]
  - MIDDLE EAR EFFUSION [None]
